FAERS Safety Report 8061150-4 (Version None)
Quarter: 2012Q1

REPORT INFORMATION
  Report Type: 
  Country: None (occurrence: None)
  Receive Date: 20120120
  Receipt Date: 20110607
  Transmission Date: 20120608
  Serious: No
  Sender: FDA-Public Use
  Company Number: US-ALLERGAN-1107734US

PATIENT
  Age: 78 Year
  Sex: Female

DRUGS (9)
  1. EXFORGE [Concomitant]
     Dosage: UNK
  2. SYNTHROID [Concomitant]
     Dosage: 75 UNK, UNK
  3. AMBIEN [Concomitant]
  4. VITAMIN D [Concomitant]
     Dosage: 1000 UNITS, UNK
  5. TIMOLOL MALEATE [Concomitant]
     Indication: GLAUCOMA
  6. HYDROCHLOROTHIAZIDE [Concomitant]
     Dosage: 25 MG, UNK
  7. RESTASIS [Suspect]
     Indication: DRY EYE
     Dosage: 1 GTT, BID
     Route: 047
     Dates: start: 20110301
  8. LUMIGAN [Concomitant]
     Indication: GLAUCOMA
     Dosage: UNK
  9. METOPROLOL TARTRATE [Concomitant]
     Dosage: 150 MG, UNK

REACTIONS (3)
  - ABDOMINAL DISTENSION [None]
  - ABDOMINAL PAIN UPPER [None]
  - ANORECTAL DISCOMFORT [None]
